FAERS Safety Report 18553816 (Version 1)
Quarter: 2020Q4

REPORT INFORMATION
  Report Type: Report from Study
  Country: CA (occurrence: CA)
  Receive Date: 20201127
  Receipt Date: 20201127
  Transmission Date: 20210114
  Serious: Yes (Death, Other)
  Sender: FDA-Public Use
  Company Number: CA-SHIRE-CA202032080

PATIENT
  Sex: Female

DRUGS (5)
  1. TECTA [Concomitant]
     Active Substance: PANTOPRAZOLE MAGNESIUM
     Indication: PRODUCT USED FOR UNKNOWN INDICATION
  2. GAMMAGARD LIQUID [Concomitant]
     Active Substance: HUMAN IMMUNOGLOBULIN G
     Indication: PRODUCT USED FOR UNKNOWN INDICATION
  3. DALTEPARIN [Concomitant]
     Active Substance: DALTEPARIN
     Indication: ANTICOAGULANT THERAPY
  4. PEMBROLIZUMAB. [Concomitant]
     Active Substance: PEMBROLIZUMAB
     Indication: IMMUNOCHEMOTHERAPY
  5. HUMAN NORMAL IMMUNOGLOBULIN; LIQUID 20 [Suspect]
     Active Substance: HUMAN IMMUNOGLOBULIN G
     Indication: SECONDARY IMMUNODEFICIENCY
     Dosage: 8 GRAM, 1X/WEEK
     Route: 058
     Dates: start: 20200421, end: 20200929

REACTIONS (1)
  - Death [Fatal]
